FAERS Safety Report 20619804 (Version 4)
Quarter: 2022Q2

REPORT INFORMATION
  Report Type: Spontaneous
  Country: JP (occurrence: JP)
  Receive Date: 20220322
  Receipt Date: 20220616
  Transmission Date: 20220721
  Serious: Yes (Death, Other)
  Sender: FDA-Public Use
  Company Number: JP-UCBJ-CD202202257UCBPHAPROD

PATIENT
  Age: 24 Year
  Sex: Male

DRUGS (1)
  1. VIMPAT [Suspect]
     Active Substance: LACOSAMIDE
     Indication: Epilepsy
     Dosage: UNK
     Route: 048
     Dates: start: 201811

REACTIONS (2)
  - Sudden unexplained death in epilepsy [Fatal]
  - Partial seizures with secondary generalisation [Not Recovered/Not Resolved]

NARRATIVE: CASE EVENT DATE: 20210426
